FAERS Safety Report 11127251 (Version 1)
Quarter: 2015Q2

REPORT INFORMATION
  Report Type: Spontaneous
  Country: US (occurrence: None)
  Receive Date: 20150520
  Receipt Date: 20150520
  Transmission Date: 20150821
  Serious: Yes (Death)
  Sender: FDA-Public Use
  Company Number: None

PATIENT
  Age: 76 Year
  Sex: Male

DRUGS (10)
  1. XGEVA [Concomitant]
     Active Substance: DENOSUMAB
  2. BENADRYL [Concomitant]
     Active Substance: DIPHENHYDRAMINE HYDROCHLORIDE
  3. ATOVASTATIN [Concomitant]
     Active Substance: ATORVASTATIN
  4. PREDNISONE. [Suspect]
     Active Substance: PREDNISONE
     Indication: PROSTATE CANCER
     Route: 048
     Dates: start: 20141211, end: 20150517
  5. HIPREX [Concomitant]
     Active Substance: METHENAMINE HIPPURATE
  6. TYLENOL [Concomitant]
     Active Substance: ACETAMINOPHEN
  7. CALTRATE [Concomitant]
     Active Substance: CALCIUM CARBONATE
  8. LISINOPRIL. [Concomitant]
     Active Substance: LISINOPRIL
  9. ZYTIGA [Suspect]
     Active Substance: ABIRATERONE ACETATE
     Indication: PROSTATE CANCER
     Route: 048
     Dates: start: 20141211, end: 20150517
  10. ELIGARD [Concomitant]
     Active Substance: LEUPROLIDE ACETATE

REACTIONS (2)
  - Device related sepsis [None]
  - Organ failure [None]

NARRATIVE: CASE EVENT DATE: 20150517
